FAERS Safety Report 6841282-6 (Version None)
Quarter: 2010Q3

REPORT INFORMATION
  Report Type: 
  Country: None (occurrence: None)
  Receive Date: 20100714
  Receipt Date: 20070804
  Transmission Date: 20110219
  Serious: No
  Sender: FDA-Public Use
  Company Number: US-PFIZER INC-2007054787

PATIENT
  Sex: Female
  Weight: 90.9 kg

DRUGS (4)
  1. CHANTIX [Suspect]
     Indication: SMOKING CESSATION THERAPY
     Route: 048
     Dates: start: 20070429
  2. LORATADINE [Concomitant]
     Route: 048
  3. ACETYLSALICYLIC ACID [Concomitant]
     Route: 048
  4. EFFEXOR [Concomitant]
     Route: 048

REACTIONS (8)
  - CHILLS [None]
  - DYSPNOEA [None]
  - EMOTIONAL DISORDER [None]
  - FEELING COLD [None]
  - FEELING HOT [None]
  - HOT FLUSH [None]
  - NASOPHARYNGITIS [None]
  - PYREXIA [None]
